FAERS Safety Report 21162399 (Version 2)
Quarter: 2022Q3

REPORT INFORMATION
  Report Type: Spontaneous
  Country: US (occurrence: US)
  Receive Date: 20220802
  Receipt Date: 20220908
  Transmission Date: 20221027
  Serious: Yes (Other)
  Sender: FDA-Public Use
  Company Number: US-JNJFOC-20220744998

PATIENT
  Sex: Male
  Weight: 99.880 kg

DRUGS (5)
  1. TREMFYA [Suspect]
     Active Substance: GUSELKUMAB
     Indication: Psoriatic arthropathy
     Route: 057
  2. LOSARTAN [Concomitant]
     Active Substance: LOSARTAN
     Indication: Blood pressure measurement
     Route: 065
  3. ZETIA [Concomitant]
     Active Substance: EZETIMIBE
     Indication: Blood cholesterol
     Route: 065
  4. BENADRYL [Concomitant]
     Active Substance: DIPHENHYDRAMINE HYDROCHLORIDE
     Indication: Product used for unknown indication
     Route: 065
  5. COVID-19 VACCINE NOS [Concomitant]
     Active Substance: COVID-19 VACCINE NOS
     Indication: Product used for unknown indication
     Route: 065

REACTIONS (3)
  - Psoriatic arthropathy [Unknown]
  - Drug ineffective [Unknown]
  - Product label issue [Unknown]
